FAERS Safety Report 15152577 (Version 1)
Quarter: 2018Q3

REPORT INFORMATION
  Report Type: Spontaneous
  Country: ES (occurrence: ES)
  Receive Date: 20180717
  Receipt Date: 20180717
  Transmission Date: 20181010
  Serious: Yes (Hospitalization, Other)
  Sender: FDA-Public Use
  Company Number: ES-ACCORD-069493

PATIENT
  Age: 60 Year
  Sex: Male

DRUGS (5)
  1. BEVACIZUMAB. [Suspect]
     Active Substance: BEVACIZUMAB
     Indication: RECTOSIGMOID CANCER
     Dates: start: 2017, end: 2017
  2. OXALIPLATIN. [Concomitant]
     Active Substance: OXALIPLATIN
     Indication: RECTOSIGMOID CANCER
     Dates: start: 2017, end: 2017
  3. FOLINIC ACID [Concomitant]
     Active Substance: LEUCOVORIN
     Indication: RECTOSIGMOID CANCER
     Dates: start: 2017, end: 2017
  4. FLUOROURACIL. [Suspect]
     Active Substance: FLUOROURACIL
     Indication: RECTOSIGMOID CANCER
     Dosage: BOLUS + CONTINOUS INFUSION
     Route: 040
     Dates: start: 2017, end: 2017
  5. MANIDIPINE/MANIDIPINE HYDROCHLORIDE [Concomitant]
     Indication: HYPERTENSION

REACTIONS (4)
  - Mitral valve incompetence [Unknown]
  - Pericardial effusion [Unknown]
  - Left ventricular dysfunction [Recovering/Resolving]
  - Cardiac failure [Recovering/Resolving]

NARRATIVE: CASE EVENT DATE: 2017
